FAERS Safety Report 6045908-9 (Version None)
Quarter: 2009Q1

REPORT INFORMATION
  Report Type: 
  Country: None (occurrence: None)
  Receive Date: 20090116
  Receipt Date: 20090106
  Transmission Date: 20090719
  Serious: Yes (Death, Life-Threatening, Disabling, Other)
  Sender: FDA-Public Use
  Company Number: 55884

PATIENT
  Age: 14 Year
  Sex: Male

DRUGS (1)
  1. AZATHIOPRINE SODIUM [Suspect]
     Indication: ACUTE GRAFT VERSUS HOST DISEASE IN SKIN

REACTIONS (4)
  - HYPERKERATOSIS [None]
  - METASTASES TO LYMPH NODES [None]
  - METASTASIS [None]
  - SQUAMOUS CELL CARCINOMA OF SKIN [None]
